FAERS Safety Report 5217758-4 (Version None)
Quarter: 2007Q1

REPORT INFORMATION
  Report Type: 
  Country: None (occurrence: None)
  Receive Date: 20061130
  Receipt Date: 20060927
  Transmission Date: 20070707
  Serious: Yes (Hospitalization)
  Sender: FDA-Public Use
  Company Number: US200608004170

PATIENT
  Age: 52 Year
  Sex: Male
  Weight: 97.5 kg

DRUGS (4)
  1. ZYPREXA [Suspect]
     Indication: BIPOLAR DISORDER
     Dosage: 10 MG, ORAL; 20 MG; 20 MG, ORAL
     Route: 048
     Dates: start: 20020101, end: 20060801
  2. ZYPREXA [Suspect]
     Indication: BIPOLAR DISORDER
     Dosage: 10 MG, ORAL; 20 MG; 20 MG, ORAL
     Route: 048
     Dates: start: 20020101, end: 20060801
  3. QUETIAPINE FUMARATE [Concomitant]
  4. ZIPRASIDONE HCL [Concomitant]

REACTIONS (4)
  - BLOOD CHOLESTEROL INCREASED [None]
  - DIABETES MELLITUS [None]
  - HYPERTENSION [None]
  - METABOLIC DISORDER [None]
